FAERS Safety Report 23693554 (Version 1)
Quarter: 2024Q2

REPORT INFORMATION
  Report Type: Spontaneous
  Country: RO (occurrence: RO)
  Receive Date: 20240401
  Receipt Date: 20240401
  Transmission Date: 20240716
  Serious: Yes (Other)
  Sender: FDA-Public Use
  Company Number: RO-ELI_LILLY_AND_COMPANY-RO202403013619

PATIENT
  Age: 70 Year
  Sex: Female

DRUGS (2)
  1. OLUMIANT [Suspect]
     Active Substance: BARICITINIB
     Indication: Rheumatoid arthritis
     Dosage: 4 MG, DAILY
     Route: 065
     Dates: start: 20191104, end: 20200810
  2. OLUMIANT [Suspect]
     Active Substance: BARICITINIB
     Dosage: 2 MG
     Route: 065
     Dates: start: 20200814, end: 20231206

REACTIONS (2)
  - Chronic hepatitis [Not Recovered/Not Resolved]
  - Urinary tract infection bacterial [Unknown]

NARRATIVE: CASE EVENT DATE: 20200127
